FAERS Safety Report 10930770 (Version 1)
Quarter: 2015Q1

REPORT INFORMATION
  Report Type: Spontaneous
  Country: FR (occurrence: FR)
  Receive Date: 20150319
  Receipt Date: 20150319
  Transmission Date: 20150721
  Serious: Yes (Hospitalization)
  Sender: FDA-Public Use
  Company Number: FR-009507513-1503FRA007355

PATIENT
  Age: 32 Year
  Sex: Female
  Weight: 60 kg

DRUGS (2)
  1. NEXPLANON [Suspect]
     Active Substance: ETONOGESTREL
     Indication: CONTRACEPTION
     Dosage: UNK
     Route: 059
     Dates: start: 20130616
  2. HORMONAL CONTRACEPTIVES (UNSPECIFIED) [Concomitant]
     Active Substance: UNSPECIFIED INGREDIENT
     Indication: HAEMORRHAGE
     Dosage: UNK
     Route: 048
     Dates: start: 201412, end: 201502

REACTIONS (4)
  - Surgery [Unknown]
  - Haemorrhage [Unknown]
  - Anaemia [Unknown]
  - Medication error [Unknown]

NARRATIVE: CASE EVENT DATE: 201409
